FAERS Safety Report 8941990 (Version 2)
Quarter: 2012Q4

REPORT INFORMATION
  Report Type: 
  Country: US (occurrence: US)
  Receive Date: 20121203
  Receipt Date: 20121221
  Transmission Date: 20130627
  Serious: Yes (Other)
  Sender: FDA-Public Use
  Company Number: US-PFIZER INC-2012299596

PATIENT
  Age: 80 Year
  Sex: Male
  Weight: 71.66 kg

DRUGS (2)
  1. TIKOSYN [Suspect]
     Indication: ATRIAL FIBRILLATION
     Dosage: 125 ug, 2x/day
     Route: 048
     Dates: start: 201209
  2. LORAZEPAM [Concomitant]
     Dosage: 0.5 mg, UNK

REACTIONS (7)
  - Large intestine polyp [Unknown]
  - Blood urine present [Not Recovered/Not Resolved]
  - Muscle twitching [Unknown]
  - Back pain [Unknown]
  - Insomnia [Unknown]
  - Muscle spasms [Unknown]
  - Pruritus [Unknown]
